FAERS Safety Report 4304150-X (Version None)
Quarter: 2004Q1

REPORT INFORMATION
  Report Type: 
  Country: None (occurrence: None)
  Receive Date: 20040225
  Receipt Date: 20040126
  Transmission Date: 20041129
  Serious: Yes (Hospitalization)
  Sender: FDA-Public Use
  Company Number: PHFR2004GB00772

PATIENT
  Age: 48 Year
  Sex: Female

DRUGS (3)
  1. CLOZARIL [Suspect]
     Indication: SCHIZOPHRENIA
     Dosage: 600MG/DAY
     Route: 048
     Dates: start: 20030128, end: 20031205
  2. LITHIUM CARBONATE [Interacting]
     Indication: MOOD SWINGS
     Route: 065
  3. DEPAKOTE [Concomitant]
     Route: 065

REACTIONS (7)
  - CONFUSIONAL STATE [None]
  - DRUG TOXICITY [None]
  - FALL [None]
  - GENERAL PHYSICAL HEALTH DETERIORATION [None]
  - HEART RATE DECREASED [None]
  - HYPOTENSION [None]
  - WHITE BLOOD CELL COUNT DECREASED [None]
